FAERS Safety Report 8360490-9 (Version None)
Quarter: 2012Q1

REPORT INFORMATION
  Report Type: 
  Country: None (occurrence: None)
  Receive Date: 20120323
  Receipt Date: 20110425
  Transmission Date: 20120608
  Serious: Yes (Other)
  Sender: FDA-Public Use
  Company Number: 163-21880-11012042

PATIENT
  Age: 83 Year
  Sex: Male

DRUGS (4)
  1. REVLIMID [Suspect]
     Indication: MULTIPLE MYELOMA
     Dosage: 25 MG, DAYS 1-21 EVERY 4 WEEKS, PO   15 MG, DAILY X 21D, PO   10 MG, 1 IN 1 D, PO
     Route: 048
     Dates: start: 20110201
  2. REVLIMID [Suspect]
     Indication: MULTIPLE MYELOMA
     Dosage: 25 MG, DAYS 1-21 EVERY 4 WEEKS, PO   15 MG, DAILY X 21D, PO   10 MG, 1 IN 1 D, PO
     Route: 048
     Dates: start: 20101215, end: 20110102
  3. REVLIMID [Suspect]
     Indication: MULTIPLE MYELOMA
     Dosage: 25 MG, DAYS 1-21 EVERY 4 WEEKS, PO   15 MG, DAILY X 21D, PO   10 MG, 1 IN 1 D, PO
     Route: 048
     Dates: start: 20101201
  4. REVLIMID [Suspect]

REACTIONS (2)
  - PANCYTOPENIA [None]
  - FATIGUE [None]
